FAERS Safety Report 25370081 (Version 1)
Quarter: 2025Q2

REPORT INFORMATION
  Report Type: Report from Study
  Country: US (occurrence: US)
  Receive Date: 20250528
  Receipt Date: 20250528
  Transmission Date: 20250717
  Serious: Yes (Other)
  Sender: MALLINCKRODT
  Company Number: US-MALLINCKRODT-MNK202500777

PATIENT
  Age: 63 Year
  Sex: Female

DRUGS (4)
  1. CORTICOTROPIN [Suspect]
     Active Substance: CORTICOTROPIN
     Indication: Rheumatoid arthritis
  2. CORTICOTROPIN [Suspect]
     Active Substance: CORTICOTROPIN
     Indication: Rheumatoid arthritis
     Dates: start: 2025, end: 2025
  3. CORTICOTROPIN [Suspect]
     Active Substance: CORTICOTROPIN
     Route: 058
     Dates: start: 2025, end: 20250312
  4. ACTEMRA [Concomitant]
     Active Substance: TOCILIZUMAB

REACTIONS (7)
  - Diverticulitis [Recovering/Resolving]
  - Stress [Unknown]
  - Weight increased [Unknown]
  - Blood glucose increased [Not Recovered/Not Resolved]
  - Cortisol increased [Not Recovered/Not Resolved]
  - Influenza [Recovering/Resolving]
  - Fatigue [Unknown]

NARRATIVE: CASE EVENT DATE: 20250101
